FAERS Safety Report 5957252-6 (Version None)
Quarter: 2008Q4

REPORT INFORMATION
  Report Type: 
  Country: None (occurrence: None)
  Receive Date: 20081118
  Receipt Date: 20081111
  Transmission Date: 20090506
  Serious: Yes (Other)
  Sender: FDA-Public Use
  Company Number: US-PFIZER INC-2008096199

PATIENT
  Sex: Female
  Weight: 77.1 kg

DRUGS (3)
  1. XANAX [Suspect]
     Indication: MUSCLE TWITCHING
     Route: 048
     Dates: start: 20080101
  2. NEXIUM [Concomitant]
  3. ATENOLOL [Concomitant]

REACTIONS (3)
  - EAR CONGESTION [None]
  - LOWER LIMB FRACTURE [None]
  - TINNITUS [None]
